FAERS Safety Report 19948232 (Version 2)
Quarter: 2022Q1

REPORT INFORMATION
  Report Type: Report from Study
  Country: US (occurrence: US)
  Receive Date: 20211012
  Receipt Date: 20220127
  Transmission Date: 20220424
  Serious: Yes (Other)
  Sender: FDA-Public Use
  Company Number: US-TAIHO ONCOLOGY INC-EU-2021-03185

PATIENT
  Age: 70 Year
  Sex: Male

DRUGS (1)
  1. LONSURF [Suspect]
     Active Substance: TIPIRACIL HYDROCHLORIDE\TRIFLURIDINE
     Indication: Colon cancer
     Dosage: CURRENT CYCLE UNKNOWN
     Route: 048
     Dates: start: 20210616

REACTIONS (2)
  - Diabetes mellitus [Unknown]
  - Eye disorder [Recovered/Resolved]
